FAERS Safety Report 23108084 (Version 1)
Quarter: 2023Q4

REPORT INFORMATION
  Report Type: Spontaneous
  Country: US (occurrence: US)
  Receive Date: 20231026
  Receipt Date: 20231026
  Transmission Date: 20240110
  Serious: No
  Sender: FDA-Public Use
  Company Number: US-002147023-NVSC2023US229538

PATIENT
  Sex: Female

DRUGS (2)
  1. VOTRIENT [Suspect]
     Active Substance: PAZOPANIB HYDROCHLORIDE
     Indication: Osteosarcoma
     Dosage: 600 MG, QD
     Route: 048
  2. VOTRIENT [Suspect]
     Active Substance: PAZOPANIB HYDROCHLORIDE
     Indication: Chondrosarcoma

REACTIONS (4)
  - Diarrhoea [Unknown]
  - Hepatic enzyme increased [Unknown]
  - Alopecia [Unknown]
  - Product use in unapproved indication [Unknown]
